FAERS Safety Report 11381705 (Version 1)
Quarter: 2015Q3

REPORT INFORMATION
  Report Type: Spontaneous
  Country: JP (occurrence: JP)
  Receive Date: 20150814
  Receipt Date: 20150814
  Transmission Date: 20151125
  Serious: Yes (Hospitalization)
  Sender: FDA-Public Use
  Company Number: JP-ASTRAZENECA-2015SE73338

PATIENT
  Age: 69 Year
  Sex: Male

DRUGS (5)
  1. PLAVIX [Concomitant]
     Active Substance: CLOPIDOGREL BISULFATE
     Dosage: DOSE UNKNOWN
     Route: 065
  2. PARIET [Concomitant]
     Active Substance: RABEPRAZOLE SODIUM
     Dosage: DOSE UNKNOWN
     Route: 065
  3. CRESTOR [Suspect]
     Active Substance: ROSUVASTATIN CALCIUM
     Route: 048
     Dates: start: 2010, end: 201507
  4. GLIMEPIRIDE. [Concomitant]
     Active Substance: GLIMEPIRIDE
     Dosage: DOSE UNKNOWN
     Route: 065
     Dates: end: 201507
  5. GILOTRIF [Concomitant]
     Active Substance: AFATINIB
     Dosage: DOSE UNKNOWN
     Route: 065

REACTIONS (3)
  - Blood creatine phosphokinase increased [Unknown]
  - Hepatic function abnormal [Unknown]
  - Renal impairment [Unknown]
